FAERS Safety Report 15060806 (Version 1)
Quarter: 2018Q2

REPORT INFORMATION
  Report Type: Spontaneous
  Country: DE (occurrence: DE)
  Receive Date: 20180625
  Receipt Date: 20180625
  Transmission Date: 20180711
  Serious: Yes (Hospitalization, Other)
  Sender: FDA-Public Use
  Company Number: DE-GILEAD-2018-0336547

PATIENT
  Age: 71 Year
  Sex: Male

DRUGS (1)
  1. ZYDELIG [Suspect]
     Active Substance: IDELALISIB
     Indication: LEUKAEMIA
     Dosage: 150 MG, BID
     Route: 048
     Dates: end: 20180420

REACTIONS (2)
  - Diarrhoea [Recovered/Resolved]
  - Gastroenteritis Escherichia coli [Recovered/Resolved]

NARRATIVE: CASE EVENT DATE: 201804
